FAERS Safety Report 15068258 (Version 6)
Quarter: 2019Q1

REPORT INFORMATION
  Report Type: Report from Study
  Country: CA (occurrence: CA)
  Receive Date: 20180626
  Receipt Date: 20190219
  Transmission Date: 20190417
  Serious: Yes (Hospitalization)
  Sender: FDA-Public Use
  Company Number: CA-JNJFOC-20180627326

PATIENT
  Age: 37 Year
  Sex: Female
  Weight: 72.6 kg

DRUGS (3)
  1. STELARA [Suspect]
     Active Substance: USTEKINUMAB
     Indication: CROHN^S DISEASE
     Route: 042
     Dates: start: 20180611
  2. STELARA [Suspect]
     Active Substance: USTEKINUMAB
     Indication: CROHN^S DISEASE
     Route: 042
     Dates: start: 20180425
  3. STELARA [Suspect]
     Active Substance: USTEKINUMAB
     Indication: CROHN^S DISEASE
     Route: 042

REACTIONS (12)
  - Intestinal resection [Unknown]
  - General physical health deterioration [Not Recovered/Not Resolved]
  - Pain [Recovered/Resolved]
  - Off label use [Unknown]
  - Drug level below therapeutic [Unknown]
  - Drug effect decreased [Unknown]
  - Product use issue [Unknown]
  - Fistula [Unknown]
  - Abdominal pain [Not Recovered/Not Resolved]
  - Abscess [Unknown]
  - Diarrhoea [Unknown]
  - Drug specific antibody [Unknown]

NARRATIVE: CASE EVENT DATE: 2018
